FAERS Safety Report 23517478 (Version 1)
Quarter: 2024Q1

REPORT INFORMATION
  Report Type: 
  Country: None (occurrence: None)
  Receive Date: 20240213
  Receipt Date: 20240213
  Transmission Date: 20240409
  Serious: No
  Sender: FDA-Public Use
  Company Number: JP-CHUGAI-2024003476

PATIENT

DRUGS (2)
  1. KADCYLA [Suspect]
     Active Substance: ADO-TRASTUZUMAB EMTANSINE
     Dosage: 3.6 MILLIGRAM/KILOGRAM, ONCE/3WEEKS
     Dates: start: 2023, end: 2023
  2. KADCYLA [Suspect]
     Active Substance: ADO-TRASTUZUMAB EMTANSINE
     Dates: start: 2023

REACTIONS (2)
  - Breast reconstruction [None]
  - Platelet count decreased [None]

NARRATIVE: CASE EVENT DATE: 20230101
